FAERS Safety Report 4609859-6 (Version None)
Quarter: 2005Q1

REPORT INFORMATION
  Report Type: 
  Country: None (occurrence: None)
  Receive Date: 20050314
  Receipt Date: 20050314
  Transmission Date: 20050727
  Serious: Yes (Other)
  Sender: FDA-Public Use
  Company Number: None

PATIENT
  Sex: Male
  Weight: 81.6475 kg

DRUGS (2)
  1. PAXIL CR [Suspect]
     Indication: ANXIETY
     Dosage: 12.5MG  1 X DAILY   ORAL
     Route: 048
     Dates: start: 20041001, end: 20050308
  2. PAXIL CR [Suspect]
     Indication: PANIC ATTACK
     Dosage: 12.5MG  1 X DAILY   ORAL
     Route: 048
     Dates: start: 20041001, end: 20050308

REACTIONS (2)
  - DRUG EFFECT DECREASED [None]
  - PANIC ATTACK [None]
